FAERS Safety Report 5817981-1 (Version None)
Quarter: 2008Q3

REPORT INFORMATION
  Report Type: 
  Country: None (occurrence: None)
  Receive Date: 20080722
  Receipt Date: 20080703
  Transmission Date: 20090109
  Serious: No
  Sender: FDA-Public Use
  Company Number: US-BOEHRINGER INGELHEIM GMBH, GERMANY-2008-BP-10351BP

PATIENT
  Age: 72 Year
  Sex: Female

DRUGS (8)
  1. SPIRIVA [Suspect]
  2. XOPENEX [Suspect]
     Indication: CHRONIC OBSTRUCTIVE PULMONARY DISEASE
     Route: 055
  3. XOPENEX [Suspect]
     Route: 055
     Dates: start: 20080601, end: 20080618
  4. FORADIL [Suspect]
  5. FLOVENT [Suspect]
  6. SYNTHROID [Concomitant]
  7. ESTRACE [Concomitant]
  8. VITAMIN TAB [Concomitant]

REACTIONS (1)
  - URTICARIA [None]
